FAERS Safety Report 5677469-8 (Version None)
Quarter: 2008Q1

REPORT INFORMATION
  Report Type: 
  Country: None (occurrence: None)
  Receive Date: 20080324
  Receipt Date: 20080312
  Transmission Date: 20080703
  Serious: Yes (Other)
  Sender: FDA-Public Use
  Company Number: FR-PFIZER INC-2008019338

PATIENT
  Sex: Male

DRUGS (4)
  1. LYRICA [Suspect]
     Indication: PAIN
     Route: 048
  2. LYRICA [Suspect]
     Indication: NEURALGIA
  3. ACETAMINOPHEN W/ PROPOXYPHENE HCL [Concomitant]
     Route: 048
  4. RIVOTRIL [Concomitant]
     Route: 048

REACTIONS (3)
  - HALO VISION [None]
  - LACRIMATION INCREASED [None]
  - VISUAL ACUITY REDUCED [None]
